FAERS Safety Report 6546679-X (Version None)
Quarter: 2010Q1

REPORT INFORMATION
  Report Type: 
  Country: None (occurrence: None)
  Receive Date: 20100122
  Receipt Date: 20100112
  Transmission Date: 20100710
  Serious: Yes (Other)
  Sender: FDA-Public Use
  Company Number: JP-PFIZER INC-2010008039

PATIENT
  Age: 25 Year

DRUGS (1)
  1. SEIBULE [Suspect]
     Indication: TYPE 2 DIABETES MELLITUS
     Dosage: UNK
     Route: 048

REACTIONS (2)
  - DIARRHOEA [None]
  - HYPERGLYCAEMIA [None]
